FAERS Safety Report 25310089 (Version 2)
Quarter: 2025Q3

REPORT INFORMATION
  Report Type: Report from Study
  Country: US (occurrence: US)
  Receive Date: 20250514
  Receipt Date: 20250803
  Transmission Date: 20251021
  Serious: Yes (Other)
  Sender: ALEXION PHARMACEUTICALS
  Company Number: US-AstraZeneca-CH-00865839A

PATIENT
  Sex: Female
  Weight: 106 kg

DRUGS (64)
  1. ACALABRUTINIB [Suspect]
     Active Substance: ACALABRUTINIB
     Indication: Chronic lymphocytic leukaemia
     Dosage: 100 MILLIGRAM, BID
     Dates: start: 20230905
  2. ACETAMINOPHEN [Concomitant]
     Active Substance: ACETAMINOPHEN
     Route: 065
  3. ALBUTEROL SULFATE [Concomitant]
     Active Substance: ALBUTEROL SULFATE
  4. AZELASTINE [Concomitant]
     Active Substance: AZELASTINE
  5. AZITHROMYCIN [Concomitant]
     Active Substance: AZITHROMYCIN
     Route: 065
  6. BENZONATATE [Concomitant]
     Active Substance: BENZONATATE
     Route: 065
  7. DELSYM [Concomitant]
     Active Substance: DEXTROMETHORPHAN
     Route: 065
  8. DIFLUCAN [Concomitant]
     Active Substance: FLUCONAZOLE
     Route: 065
  9. ELIQUIS [Concomitant]
     Active Substance: APIXABAN
     Route: 065
  10. ERYTHROMYCIN [Concomitant]
     Active Substance: ERYTHROMYCIN
  11. FLUTICASONE [Concomitant]
     Active Substance: FLUTICASONE
     Route: 065
  12. PROBIOTICS NOS [Concomitant]
     Active Substance: PROBIOTICS NOS
     Route: 065
  13. TRELEGY ELLIPTA [Concomitant]
     Active Substance: FLUTICASONE FUROATE\UMECLIDINIUM BROMIDE\VILANTEROL TRIFENATATE
  14. ARNICARE [Concomitant]
     Active Substance: HOMEOPATHICS
  15. BIOFREEZE [Concomitant]
     Active Substance: MENTHOL
     Route: 065
  16. BIOTIN [Concomitant]
     Active Substance: BIOTIN
     Route: 065
  17. Bromphen [Concomitant]
     Route: 065
  18. PSEUDOEPHEDRINE [Concomitant]
     Active Substance: PSEUDOEPHEDRINE
     Route: 065
  19. DEXTROMETHORPHAN [Concomitant]
     Active Substance: DEXTROMETHORPHAN
     Route: 065
  20. CALCIUM CARBONATE [Concomitant]
     Active Substance: CALCIUM CARBONATE
     Route: 065
  21. CARAFATE [Concomitant]
     Active Substance: SUCRALFATE
     Route: 065
  22. CITRUCEL [Concomitant]
     Active Substance: METHYLCELLULOSE (4000 CPS)
     Route: 065
  23. CLARITIN [Concomitant]
     Active Substance: LORATADINE
     Route: 065
  24. CYANOCOBALAMIN [Concomitant]
     Active Substance: CYANOCOBALAMIN
     Route: 065
  25. DEMANNOSE [Concomitant]
     Active Substance: DEMANNOSE
     Route: 065
  26. ESTRING [Concomitant]
     Active Substance: ESTRADIOL
  27. FENOFIBRATE [Concomitant]
     Active Substance: FENOFIBRATE
     Route: 065
  28. FISH OIL [Concomitant]
     Active Substance: FISH OIL
     Route: 065
  29. GABAPENTIN [Concomitant]
     Active Substance: GABAPENTIN
     Route: 065
  30. HYDROCHLOROTHIAZIDE [Concomitant]
     Active Substance: HYDROCHLOROTHIAZIDE
     Route: 065
  31. HYDROCODONE [Concomitant]
     Active Substance: HYDROCODONE
     Route: 065
  32. HYDROQUINONE [Concomitant]
     Active Substance: HYDROQUINONE
  33. KETOCONAZOLE [Concomitant]
     Active Substance: KETOCONAZOLE
  34. LATANOPROST [Concomitant]
     Active Substance: LATANOPROST
  35. LIDOCAINE VISCOUS [Concomitant]
     Active Substance: LIDOCAINE HYDROCHLORIDE
     Route: 065
  36. METOPROLOL [Concomitant]
     Active Substance: METOPROLOL
     Route: 065
  37. MIRALAX [Concomitant]
     Active Substance: POLYETHYLENE GLYCOL 3350
     Route: 065
  38. MONTELUKAST [Concomitant]
     Active Substance: MONTELUKAST
     Route: 065
  39. VITAMINS [Concomitant]
     Active Substance: VITAMINS
     Route: 065
  40. NYSTATIN [Concomitant]
     Active Substance: NYSTATIN
  41. NYSTATIN [Concomitant]
     Active Substance: NYSTATIN
  42. NYSTATIN AND TRIAMCINOLONE [Concomitant]
     Active Substance: NYSTATIN\TRIAMCINOLONE ACETONIDE
  43. OMEGA-3 ACIDS [Concomitant]
     Active Substance: OMEGA-3 FATTY ACIDS
     Route: 065
  44. OMEPRAZOLE [Concomitant]
     Active Substance: OMEPRAZOLE
     Route: 065
  45. CHONDROITIN SULFATE A\GLUCOSAMINE [Concomitant]
     Active Substance: CHONDROITIN SULFATE A\GLUCOSAMINE
     Route: 065
  46. PANTOPRAZOLE [Concomitant]
     Active Substance: PANTOPRAZOLE
  47. PEPCID AC [Concomitant]
     Active Substance: FAMOTIDINE
     Route: 065
  48. PREDNISONE [Concomitant]
     Active Substance: PREDNISONE
     Route: 065
  49. PROAIR HFA [Concomitant]
     Active Substance: ALBUTEROL SULFATE
  50. ROSUVASTATIN [Concomitant]
     Active Substance: ROSUVASTATIN
     Route: 065
  51. RYALTRIS [Concomitant]
     Active Substance: MOMETASONE FUROATE MONOHYDRATE\OLOPATADINE HYDROCHLORIDE
  52. SERTRALINE [Concomitant]
     Active Substance: SERTRALINE HYDROCHLORIDE
     Route: 065
  53. SUCRALFATE [Concomitant]
     Active Substance: SUCRALFATE
  54. SYNTHROID [Concomitant]
     Active Substance: LEVOTHYROXINE SODIUM
     Route: 065
  55. SYSTANE (HYPROMELLOSE 2910 (4000 MPA.S)) [Concomitant]
     Active Substance: HYPROMELLOSE 2910 (4000 MPA.S)
  56. TAMIFLU [Concomitant]
     Active Substance: OSELTAMIVIR PHOSPHATE
     Route: 065
  57. TIZANIDINE [Concomitant]
     Active Substance: TIZANIDINE
     Route: 065
  58. TRAZODONE HYDROCHLORIDE [Concomitant]
     Active Substance: TRAZODONE HYDROCHLORIDE
     Route: 065
  59. VALACYCLOVIR [Concomitant]
     Active Substance: VALACYCLOVIR HYDROCHLORIDE
     Route: 065
  60. VITAMIN C [Concomitant]
     Active Substance: ASCORBIC ACID
     Route: 065
  61. VITAMIN D [Concomitant]
     Active Substance: VITAMIN D NOS
     Route: 065
  62. VOLTAREN [Concomitant]
     Active Substance: DICLOFENAC SODIUM
     Indication: Arthralgia
  63. ZITHROMAX [Concomitant]
     Active Substance: AZITHROMYCIN DIHYDRATE
     Route: 065
  64. ZYRTEC [Concomitant]
     Active Substance: CETIRIZINE HYDROCHLORIDE
     Route: 065

REACTIONS (1)
  - Pneumonitis [Unknown]
